FAERS Safety Report 23458887 (Version 4)
Quarter: 2024Q2

REPORT INFORMATION
  Report Type: Report from Study
  Country: US (occurrence: US)
  Receive Date: 20240131
  Receipt Date: 20240424
  Transmission Date: 20240716
  Serious: Yes (Other)
  Sender: FDA-Public Use
  Company Number: US-ABBVIE-5603760

PATIENT
  Age: 77 Year
  Sex: Female

DRUGS (2)
  1. SKYRIZI [Suspect]
     Active Substance: RISANKIZUMAB-RZAA
     Indication: Crohn^s disease
     Route: 058
  2. SKYRIZI [Suspect]
     Active Substance: RISANKIZUMAB-RZAA
     Indication: Crohn^s disease
     Route: 042
     Dates: start: 2023

REACTIONS (20)
  - Blindness unilateral [Unknown]
  - Gastrooesophageal reflux disease [Unknown]
  - Arthritis [Unknown]
  - Limb injury [Not Recovered/Not Resolved]
  - Contusion [Unknown]
  - Joint swelling [Unknown]
  - Injection site erythema [Recovered/Resolved]
  - Hypoacusis [Unknown]
  - Peripheral swelling [Unknown]
  - Product administration interrupted [Not Recovered/Not Resolved]
  - Pain [Unknown]
  - Skin discolouration [Not Recovered/Not Resolved]
  - Nervousness [Unknown]
  - Dizziness [Unknown]
  - Tremor [Unknown]
  - Pain in extremity [Unknown]
  - Generalised oedema [Unknown]
  - Grip strength decreased [Unknown]
  - Fatigue [Unknown]
  - Foot deformity [Unknown]

NARRATIVE: CASE EVENT DATE: 20240201
